FAERS Safety Report 23593848 (Version 1)
Quarter: 2024Q1

REPORT INFORMATION
  Report Type: Report from Study
  Country: CA (occurrence: CA)
  Receive Date: 20240305
  Receipt Date: 20240305
  Transmission Date: 20240410
  Serious: Yes (Hospitalization, Other)
  Sender: FDA-Public Use
  Company Number: CA-ABBVIE-5609061

PATIENT
  Age: 65 Year
  Sex: Male

DRUGS (7)
  1. LUPRON [Suspect]
     Active Substance: LEUPROLIDE ACETATE
     Indication: Prostate cancer
     Route: 030
     Dates: start: 20200107
  2. LUTETIUM LU-177 [Suspect]
     Active Substance: LUTETIUM LU-177
     Indication: Prostate cancer
     Route: 065
     Dates: start: 202210
  3. ABIRATERONE [Concomitant]
     Active Substance: ABIRATERONE
     Indication: Prostate cancer
     Dates: start: 20200210, end: 20211122
  4. OLAPARIB [Suspect]
     Active Substance: OLAPARIB
     Indication: Prostate cancer
     Route: 065
     Dates: start: 202307, end: 202311
  5. DOCETAXEL [Concomitant]
     Active Substance: DOCETAXEL\DOCETAXEL ANHYDROUS
     Indication: Prostate cancer
     Dates: start: 202112
  6. CEFTRIAXONE [Concomitant]
     Active Substance: CEFTRIAXONE\CEFTRIAXONE SODIUM
     Indication: Product used for unknown indication
  7. CORTICOSTEROID NOS [Concomitant]
     Active Substance: CORTICOSTEROID NOS
     Indication: Product used for unknown indication

REACTIONS (14)
  - Pyrexia [Unknown]
  - Factor VIII inhibition [Recovering/Resolving]
  - Bone pain [Not Recovered/Not Resolved]
  - Prostatic specific antigen increased [Unknown]
  - Bone lesion [Unknown]
  - Cerebral haemorrhage [Unknown]
  - Bone marrow infiltration [Unknown]
  - Thrombocytopenia [Unknown]
  - Bladder disorder [Unknown]
  - Prostate cancer [Unknown]
  - Bone disorder [Unknown]
  - General physical health deterioration [Unknown]
  - Activated partial thromboplastin time abnormal [Recovered/Resolved]
  - Mobility decreased [Unknown]

NARRATIVE: CASE EVENT DATE: 20240101
